FAERS Safety Report 13634019 (Version 2)
Quarter: 2017Q2

REPORT INFORMATION
  Report Type: Spontaneous
  Country: LB (occurrence: LB)
  Receive Date: 20170609
  Receipt Date: 20170620
  Transmission Date: 20170830
  Serious: Yes (Death, Life-Threatening, Hospitalization, Other)
  Sender: FDA-Public Use
  Company Number: LB-ACCORD-052425

PATIENT
  Age: 72 Year
  Sex: Female
  Weight: 88.9 kg

DRUGS (8)
  1. LEVOTHYROXINE. [Concomitant]
     Active Substance: LEVOTHYROXINE
  2. FLUOROURACIL. [Suspect]
     Active Substance: FLUOROURACIL
     Indication: OESOPHAGEAL CANCER METASTATIC
     Dosage: 1500 MG FOR 4 DAYS
  3. RABEPRAZOLE/RABEPRAZOLE SODIUM [Concomitant]
  4. BISOPROLOL [Concomitant]
     Active Substance: BISOPROLOL
  5. CALCIUM/COLECALCIFEROL [Concomitant]
  6. PREDNISONE. [Concomitant]
     Active Substance: PREDNISONE
  7. DOMPERIDONE [Concomitant]
     Active Substance: DOMPERIDONE
  8. CISPLATIN. [Suspect]
     Active Substance: CISPLATIN
     Indication: OESOPHAGEAL CANCER METASTATIC
     Dosage: 120 MG ON DAY 1

REACTIONS (8)
  - Atrial fibrillation [Fatal]
  - Klebsiella infection [Unknown]
  - Stomatitis [Unknown]
  - Septic shock [Unknown]
  - Toxicity to various agents [Fatal]
  - Hepatitis fulminant [Fatal]
  - Escherichia infection [Unknown]
  - Hepatic failure [Unknown]
